FAERS Safety Report 9331880 (Version 1)
Quarter: 2013Q2

REPORT INFORMATION
  Report Type: Spontaneous
  Country: US (occurrence: US)
  Receive Date: 20130605
  Receipt Date: 20130605
  Transmission Date: 20140414
  Serious: No
  Sender: FDA-Public Use
  Company Number: US-009507513-1305USA012077

PATIENT
  Age: 66 Year
  Sex: Male

DRUGS (5)
  1. VYTORIN [Suspect]
     Dosage: UNK
     Route: 048
     Dates: start: 2013
  2. ANDROGEL [Concomitant]
  3. TRIAMTERENE [Concomitant]
  4. HYDROCHLOROTHIAZIDE [Concomitant]
     Route: 048
  5. QUINAPRIL HYDROCHLORIDE [Concomitant]

REACTIONS (1)
  - Vomiting [Unknown]
